FAERS Safety Report 15854780 (Version 1)
Quarter: 2019Q1

REPORT INFORMATION
  Report Type: Report from Study
  Country: US (occurrence: US)
  Receive Date: 20190122
  Receipt Date: 20190122
  Transmission Date: 20190417
  Serious: Yes (Hospitalization, Other)
  Sender: FDA-Public Use
  Company Number: US-BAYER-2019-013851

PATIENT
  Age: 55 Year
  Sex: Male
  Weight: 99.77 kg

DRUGS (3)
  1. WARFARIN [Concomitant]
     Active Substance: WARFARIN
     Dosage: UNK
  2. ADEMPAS [Suspect]
     Active Substance: RIOCIGUAT
     Indication: PULMONARY ARTERIAL HYPERTENSION
     Dosage: 2.5MG 2 TIMES DAILY AND 1.5 MG 1 DAILY IN THE PM
     Route: 048
  3. ADEMPAS [Suspect]
     Active Substance: RIOCIGUAT
     Indication: PULMONARY ARTERIAL HYPERTENSION
     Dosage: UNK
     Dates: start: 20170825

REACTIONS (6)
  - Seizure [Unknown]
  - Fall [None]
  - Dizziness [Unknown]
  - Headache [Unknown]
  - Head injury [None]
  - Incorrect dose administered [None]

NARRATIVE: CASE EVENT DATE: 201901
